FAERS Safety Report 6607034-7 (Version None)
Quarter: 2010Q1

REPORT INFORMATION
  Report Type: 
  Country: None (occurrence: None)
  Receive Date: 20100227
  Receipt Date: 20100212
  Transmission Date: 20100710
  Serious: Yes (Hospitalization, Other)
  Sender: FDA-Public Use
  Company Number: US-CELGENEUS-163-21880-10011380

PATIENT
  Sex: Female

DRUGS (6)
  1. REVLIMID [Suspect]
     Route: 048
     Dates: start: 20090901, end: 20091201
  2. REVLIMID [Suspect]
     Route: 048
     Dates: start: 20090605
  3. REVLIMID [Suspect]
     Route: 048
     Dates: start: 20090201
  4. REVLIMID [Suspect]
     Dosage: 15-25MG
     Route: 048
     Dates: start: 20080301, end: 20080101
  5. DECADRON [Concomitant]
     Indication: DRUG USE FOR UNKNOWN INDICATION
     Route: 065
     Dates: end: 20091201
  6. ZOMETA [Concomitant]
     Indication: DRUG USE FOR UNKNOWN INDICATION
     Route: 051

REACTIONS (10)
  - ASTHENIA [None]
  - ATRIAL FIBRILLATION [None]
  - CARDIAC FAILURE CONGESTIVE [None]
  - FALL [None]
  - FATIGUE [None]
  - HAEMOGLOBIN DECREASED [None]
  - OSTEONECROSIS [None]
  - PNEUMONIA [None]
  - RENAL INJURY [None]
  - STAPHYLOCOCCAL INFECTION [None]
